FAERS Safety Report 8989849 (Version 1)
Quarter: 2012Q4

REPORT INFORMATION
  Report Type: Report from Study
  Country: US (occurrence: US)
  Receive Date: 20121228
  Receipt Date: 20121228
  Transmission Date: 20130627
  Serious: Yes (Other)
  Sender: FDA-Public Use
  Company Number: US-JNJFOC-20121008114

PATIENT
  Age: 53 None
  Sex: Female

DRUGS (9)
  1. REMICADE [Suspect]
     Indication: COLITIS ULCERATIVE
     Route: 042
     Dates: end: 20120825
  2. REMICADE [Suspect]
     Indication: COLITIS ULCERATIVE
     Dosage: The patient had received 8 infusion
     Route: 042
     Dates: start: 20110608
  3. REMICADE [Suspect]
     Indication: COLITIS ULCERATIVE
     Route: 042
     Dates: start: 201107
  4. REMICADE [Suspect]
     Indication: COLITIS ULCERATIVE
     Route: 042
     Dates: start: 201206
  5. SINGULAIR [Concomitant]
     Indication: HYPERSENSITIVITY
     Route: 065
  6. SINGULAIR [Concomitant]
     Indication: ASTHMA
     Route: 065
  7. PROPRANOLOL [Concomitant]
     Indication: MIGRAINE
     Route: 065
  8. FENOFIBRATE [Concomitant]
     Indication: BLOOD CHOLESTEROL
     Route: 065
  9. HYDROCHLOROTHIAZIDE [Concomitant]
     Indication: FLUID RETENTION
     Route: 065

REACTIONS (8)
  - Hypersensitivity [Unknown]
  - Flushing [Not Recovered/Not Resolved]
  - Staring [Not Recovered/Not Resolved]
  - Headache [Not Recovered/Not Resolved]
  - Dizziness [Not Recovered/Not Resolved]
  - Respiration abnormal [Unknown]
  - Erythema [Unknown]
  - Infusion related reaction [Unknown]
